FAERS Safety Report 8854623 (Version 3)
Quarter: 2014Q2

REPORT INFORMATION
  Report Type: Spontaneous
  Country: US (occurrence: US)
  Receive Date: 20121023
  Receipt Date: 20131018
  Transmission Date: 20141212
  Serious: Yes (Hospitalization, Other)
  Sender: FDA-Public Use
  Company Number: US-PFIZER INC-2012260294

PATIENT
  Age: 62 Year
  Sex: Female
  Weight: 137 kg

DRUGS (3)
  1. DILANTIN [Suspect]
     Indication: CONVULSION
     Dosage: 500 MG, 2X/DAY
     Dates: start: 1997
  2. DILANTIN [Suspect]
     Dosage: 400 MG, 2X/DAY
     Dates: end: 201203
  3. LYRICA [Suspect]
     Indication: FIBROMYALGIA
     Dosage: 75 MG, 2X/DAY
     Dates: start: 2011, end: 2012

REACTIONS (7)
  - Pulmonary thrombosis [Recovered/Resolved]
  - Oedema peripheral [Recovered/Resolved]
  - Lung disorder [Recovering/Resolving]
  - Dyspnoea [Recovering/Resolving]
  - Balance disorder [Unknown]
  - Fall [Unknown]
  - Weight decreased [Unknown]
